APPROVED DRUG PRODUCT: MYCOPHENOLATE MOFETIL
Active Ingredient: MYCOPHENOLATE MOFETIL
Strength: 250MG
Dosage Form/Route: CAPSULE;ORAL
Application: A214079 | Product #001 | TE Code: AB
Applicant: WUXI FORTUNE PHARMACEUTICAL CO LTD
Approved: Nov 7, 2024 | RLD: No | RS: No | Type: RX